FAERS Safety Report 9493328 (Version 2)
Quarter: 2013Q3

REPORT INFORMATION
  Report Type: Spontaneous
  Country: US (occurrence: US)
  Receive Date: 20130902
  Receipt Date: 20130902
  Transmission Date: 20140515
  Serious: Yes (Life-Threatening)
  Sender: FDA-Public Use
  Company Number: US-RANBAXY-2010US-36152

PATIENT
  Age: 58 Year
  Sex: Female

DRUGS (26)
  1. VERAPAMIL [Suspect]
     Indication: SUPRAVENTRICULAR TACHYCARDIA
     Dosage: 40 MG, SINGLE
     Route: 048
  2. SERTRALINE [Suspect]
     Indication: DEPRESSION
     Dosage: 25 MG/DAY
     Route: 065
  3. SERTRALINE [Suspect]
     Indication: PSYCHOMOTOR RETARDATION
  4. METHYLPHENIDATE [Suspect]
     Indication: DEPRESSION
     Dosage: 5 MG/DAY
     Route: 065
  5. METHYLPHENIDATE [Suspect]
     Indication: PSYCHOMOTOR RETARDATION
  6. DOPAMINE [Suspect]
     Indication: ILL-DEFINED DISORDER
     Dosage: UNK
     Route: 065
  7. TACROLIMUS [Concomitant]
     Indication: PRODUCT USED FOR UNKNOWN INDICATION
     Route: 065
  8. CYCLOPHOSPHAMIDE [Concomitant]
     Indication: PRODUCT USED FOR UNKNOWN INDICATION
     Route: 065
  9. PREDNISONE [Concomitant]
     Indication: PRODUCT USED FOR UNKNOWN INDICATION
     Dosage: 40 MG, BID
     Route: 065
  10. VALGANCILCOVIR [Concomitant]
     Indication: PRODUCT USED FOR UNKNOWN INDICATION
     Route: 065
  11. ERYTHROPOIETIN [Concomitant]
     Indication: PRODUCT USED FOR UNKNOWN INDICATION
     Route: 065
  12. PRAVASTATIN [Concomitant]
     Indication: PRODUCT USED FOR UNKNOWN INDICATION
     Route: 065
  13. ASPIRIN [Concomitant]
     Indication: PRODUCT USED FOR UNKNOWN INDICATION
     Route: 065
  14. CALCIUM CITRATE [Concomitant]
     Indication: PRODUCT USED FOR UNKNOWN INDICATION
     Route: 065
  15. PANTOPRAZOLE [Concomitant]
     Indication: PRODUCT USED FOR UNKNOWN INDICATION
     Route: 065
  16. DOCUSATE SODIUM [Concomitant]
     Indication: PRODUCT USED FOR UNKNOWN INDICATION
     Route: 065
  17. AMPHOTERICIN B [Concomitant]
     Indication: PRODUCT USED FOR UNKNOWN INDICATION
     Route: 065
  18. TRIMETHOPRIM/SULPHAMETHOXAZOLE [Concomitant]
     Indication: PRODUCT USED FOR UNKNOWN INDICATION
     Route: 065
  19. FUROSEMIDE [Concomitant]
     Indication: PRODUCT USED FOR UNKNOWN INDICATION
     Route: 065
  20. LEVOFLOXACIN [Concomitant]
     Indication: PRODUCT USED FOR UNKNOWN INDICATION
     Route: 065
  21. ISOPHANE INSULIN [Concomitant]
     Indication: PRODUCT USED FOR UNKNOWN INDICATION
  22. VANCOMYCIN [Concomitant]
     Indication: PRODUCT USED FOR UNKNOWN INDICATION
     Route: 065
  23. NYSTATIN [Concomitant]
     Indication: PRODUCT USED FOR UNKNOWN INDICATION
     Route: 065
  24. HEPARIN [Concomitant]
     Indication: PRODUCT USED FOR UNKNOWN INDICATION
     Route: 058
  25. FERROUS GLUCONATE [Concomitant]
     Indication: PRODUCT USED FOR UNKNOWN INDICATION
     Route: 065
  26. MULTIVITAMINS [Concomitant]
     Indication: PRODUCT USED FOR UNKNOWN INDICATION
     Route: 065

REACTIONS (5)
  - Supraventricular tachycardia [Recovering/Resolving]
  - Drug interaction [Unknown]
  - Atrioventricular block second degree [Recovering/Resolving]
  - Hypotension [Recovering/Resolving]
  - Cardiac arrest [Recovering/Resolving]
